FAERS Safety Report 4524162-0 (Version None)
Quarter: 2005Q1

REPORT INFORMATION
  Report Type: 
  Country: None (occurrence: None)
  Receive Date: 20041119
  Receipt Date: 20040915
  Transmission Date: 20050727
  Serious: No
  Sender: FDA-Public Use
  Company Number: 209144

PATIENT
  Age: 54 Year
  Sex: Male

DRUGS (1)
  1. RAPTIVA [Suspect]
     Indication: PSORIASIS
     Dosage: 1.3 ML, 1/WEEK, SUBCUTANEOUS
     Route: 058
     Dates: start: 20040401

REACTIONS (2)
  - HYPOAESTHESIA [None]
  - INJECTION SITE PAIN [None]
